FAERS Safety Report 4531604-3 (Version None)
Quarter: 2004Q4

REPORT INFORMATION
  Report Type: 
  Country: None (occurrence: None)
  Receive Date: 20041216
  Receipt Date: 20041206
  Transmission Date: 20050328
  Serious: Yes (Death)
  Sender: FDA-Public Use
  Company Number: 2004104096

PATIENT
  Age: 59 Year
  Sex: Male

DRUGS (1)
  1. BENADRYL [Suspect]
     Indication: ARTHROPOD STING
     Dosage: ORAL
     Route: 048
     Dates: start: 19490101

REACTIONS (1)
  - CEREBROVASCULAR ACCIDENT [None]
